FAERS Safety Report 20234106 (Version 1)
Quarter: 2021Q4

REPORT INFORMATION
  Report Type: Spontaneous
  Country: US (occurrence: US)
  Receive Date: 20211227
  Receipt Date: 20211227
  Transmission Date: 20220303
  Serious: No
  Sender: FDA-Public Use
  Company Number: US-FOUNDATIONCONSUMERHC-2021-US-014669

PATIENT
  Age: 30 Year
  Sex: Female
  Weight: 72.58 kg

DRUGS (7)
  1. PLAN B ONE-STEP [Suspect]
     Active Substance: LEVONORGESTREL
     Indication: Post coital contraception
     Dosage: 1.5 MG
     Route: 048
     Dates: start: 20210701, end: 20210701
  2. HERBALS [Concomitant]
     Active Substance: HERBALS
  3. Once Daily Women^s Probiotic [Concomitant]
  4. Spanish Black Raddish [Concomitant]
  5. CONGAPLEX [Concomitant]
  6. BETACOL [Concomitant]
  7. Organically Bound Mineral [Concomitant]

REACTIONS (1)
  - Suppressed lactation [Not Recovered/Not Resolved]

NARRATIVE: CASE EVENT DATE: 20210702
